FAERS Safety Report 23607997 (Version 1)
Quarter: 2024Q1

REPORT INFORMATION
  Report Type: Spontaneous
  Country: PL (occurrence: PL)
  Receive Date: 20240307
  Receipt Date: 20240307
  Transmission Date: 20240410
  Serious: Yes (Other)
  Sender: FDA-Public Use
  Company Number: None

PATIENT
  Age: 28 Year
  Sex: Female
  Weight: 56 kg

DRUGS (3)
  1. VENLAFAXINE [Suspect]
     Active Substance: VENLAFAXINE HYDROCHLORIDE
     Indication: Product used for unknown indication
     Dosage: THERAPY ONGOING
     Route: 048
  2. ASTRAZENECA COVID-19 VACCINE [Suspect]
     Active Substance: AZD-1222
     Indication: Product used for unknown indication
     Route: 030
     Dates: start: 20210228, end: 20210228
  3. CHLORPROTHIXENE HYDROCHLORIDE [Concomitant]
     Active Substance: CHLORPROTHIXENE HYDROCHLORIDE
     Indication: Product used for unknown indication
     Dosage: THERAPY ONGOING
     Route: 048

REACTIONS (5)
  - Altered state of consciousness [Recovered/Resolved]
  - Body temperature increased [Recovered/Resolved]
  - Pain [Recovered/Resolved]
  - Electric shock sensation [Recovered/Resolved]
  - Paraesthesia [Recovered/Resolved]

NARRATIVE: CASE EVENT DATE: 20210228
